FAERS Safety Report 9114323 (Version 1)
Quarter: 2013Q1

REPORT INFORMATION
  Report Type: Spontaneous
  Country: PT (occurrence: PT)
  Receive Date: 20130208
  Receipt Date: 20130208
  Transmission Date: 20140127
  Serious: Yes (Other)
  Sender: FDA-Public Use
  Company Number: PHHY2013PT009655

PATIENT
  Sex: Male

DRUGS (2)
  1. TOBI PODHALER [Suspect]
     Indication: BRONCHIECTASIS
     Dosage: UNK UKN, UNK
     Dates: start: 201301
  2. CORTICOSTEROIDS [Concomitant]
     Dosage: UNK UKN, UNK
     Route: 048

REACTIONS (3)
  - Bronchospasm [Recovered/Resolved]
  - Dyspnoea [Recovered/Resolved]
  - Wheezing [Recovered/Resolved]
